FAERS Safety Report 6945264-5 (Version None)
Quarter: 2010Q3

REPORT INFORMATION
  Report Type: 
  Country: None (occurrence: None)
  Receive Date: 20100827
  Receipt Date: 20100713
  Transmission Date: 20110219
  Serious: No
  Sender: FDA-Public Use
  Company Number: US-KINGPHARMUSA00001-K201000893

PATIENT
  Sex: Male
  Weight: 72.562 kg

DRUGS (3)
  1. FLECTOR [Suspect]
     Indication: PAIN IN EXTREMITY
     Dosage: UNK PATCH
     Route: 061
     Dates: start: 20100707, end: 20100711
  2. FLECTOR [Suspect]
     Indication: JOINT SPRAIN
  3. ANTIHYPERTENSIVES [Concomitant]
     Indication: HYPERTENSION
     Dosage: UNK

REACTIONS (2)
  - DYSPNOEA [None]
  - PAIN [None]
